FAERS Safety Report 5780582-8 (Version None)
Quarter: 2008Q2

REPORT INFORMATION
  Report Type: 
  Country: None (occurrence: None)
  Receive Date: 20080620
  Receipt Date: 20080303
  Transmission Date: 20081010
  Serious: Yes (Hospitalization)
  Sender: FDA-Public Use
  Company Number: TR-ELI_LILLY_AND_COMPANY-TR200806003625

PATIENT
  Age: 25 Year
  Sex: Female
  Weight: 70 kg

DRUGS (3)
  1. HUMULIN R [Suspect]
     Indication: DIABETES MELLITUS
     Dosage: 6 IU, 3/D
     Route: 058
     Dates: start: 20080120
  2. HUMULIN N [Suspect]
     Indication: DIABETES MELLITUS
     Dosage: 8 U, DAILY (1/D)
     Route: 058
     Dates: start: 20080120
  3. IRON [Concomitant]
     Dosage: 1 D/F, DAILY (1/D)
     Route: 048

REACTIONS (2)
  - DEHYDRATION [None]
  - DRUG EXPOSURE DURING PREGNANCY [None]
